FAERS Safety Report 4555393-1 (Version None)
Quarter: 2005Q1

REPORT INFORMATION
  Report Type: 
  Country: None (occurrence: None)
  Receive Date: 20050118
  Receipt Date: 20050118
  Transmission Date: 20050727
  Serious: Yes (Hospitalization)
  Sender: FDA-Public Use
  Company Number: None

PATIENT
  Age: 45 Year
  Sex: Male

DRUGS (14)
  1. ABCIXIMAB [Suspect]
     Indication: ACUTE CORONARY SYNDROME
     Dates: start: 20041129, end: 20041129
  2. ABCIXIMAB [Suspect]
     Indication: MYOCARDIAL INFARCTION
     Dates: start: 20041129, end: 20041129
  3. HEPARIN [Suspect]
     Indication: ACUTE CORONARY SYNDROME
     Dates: start: 20041129, end: 20041129
  4. HEPARIN [Suspect]
     Indication: MYOCARDIAL INFARCTION
     Dates: start: 20041129, end: 20041129
  5. CLOPIDOGREL [Suspect]
     Indication: ACUTE CORONARY SYNDROME
     Dosage: 300MG X1
  6. CLOPIDOGREL [Suspect]
     Indication: MYOCARDIAL INFARCTION
     Dosage: 300MG X1
  7. ASPIRIN [Suspect]
     Indication: MYOCARDIAL INFARCTION
  8. AMIODARONE HCL [Concomitant]
  9. DEXTROSE [Concomitant]
  10. METOPROLOL [Concomitant]
  11. NITROGLYCERIN [Concomitant]
  12. OXYCODONE AND ACETAMINOPHEN [Concomitant]
  13. PANTOPRAZOLE / SODIUM CHLORIDE [Concomitant]
  14. SIMVASTATIN [Concomitant]

REACTIONS (3)
  - HAEMATEMESIS [None]
  - POST PROCEDURAL COMPLICATION [None]
  - REFUSAL OF TREATMENT BY PATIENT [None]
